FAERS Safety Report 7853589-4 (Version None)
Quarter: 2011Q4

REPORT INFORMATION
  Report Type: 
  Country: None (occurrence: None)
  Receive Date: 20111026
  Receipt Date: 20111018
  Transmission Date: 20120403
  Serious: Yes (Hospitalization, Other)
  Sender: FDA-Public Use
  Company Number: US-ASTRAZENECA-2009SE13046

PATIENT
  Age: 51 Year
  Sex: Male

DRUGS (2)
  1. SEROQUEL [Suspect]
     Route: 048
     Dates: start: 19790101, end: 20110201
  2. SEROQUEL [Suspect]
     Route: 048

REACTIONS (6)
  - VICTIM OF ABUSE [None]
  - DRUG HYPERSENSITIVITY [None]
  - DIABETES MELLITUS [None]
  - SCREAMING [None]
  - AGGRESSION [None]
  - ABNORMAL BEHAVIOUR [None]
